FAERS Safety Report 9704895 (Version 1)
Quarter: 2013Q4

REPORT INFORMATION
  Report Type: Spontaneous
  Country: US (occurrence: US)
  Receive Date: 20131122
  Receipt Date: 20131122
  Transmission Date: 20140711
  Serious: No
  Sender: FDA-Public Use
  Company Number: US-AMARIN PHARMA, INC.-2013AMR000071

PATIENT
  Age: 41 Year
  Sex: Male
  Weight: 93.98 kg

DRUGS (3)
  1. VASCEPA [Suspect]
     Indication: LIPIDS INCREASED
     Dates: start: 20130327
  2. LIPITOR [Concomitant]
     Indication: PRODUCT USED FOR UNKNOWN INDICATION
     Dates: start: 20130327
  3. NIASPAN [Concomitant]
     Indication: PRODUCT USED FOR UNKNOWN INDICATION
     Dates: start: 20130327

REACTIONS (2)
  - Blood triglycerides increased [Unknown]
  - Low density lipoprotein decreased [Unknown]
